FAERS Safety Report 19737065 (Version 1)
Quarter: 2021Q3

REPORT INFORMATION
  Report Type: Spontaneous
  Country: US (occurrence: US)
  Receive Date: 20210823
  Receipt Date: 20210823
  Transmission Date: 20211014
  Serious: No
  Sender: FDA-Public Use
  Company Number: US-ASTRAZENECA-2021A655822

PATIENT
  Age: 924 Month
  Sex: Female
  Weight: 75.3 kg

DRUGS (1)
  1. SYMBICORT [Suspect]
     Active Substance: BUDESONIDE\FORMOTEROL FUMARATE DIHYDRATE
     Indication: ASTHMA
     Dosage: AS REQUIRED AS REQUIRED
     Route: 055

REACTIONS (11)
  - Fall [Unknown]
  - Spinal fracture [Unknown]
  - Pain [Unknown]
  - Body height decreased [Unknown]
  - Balance disorder [Unknown]
  - Weight decreased [Unknown]
  - Upper limb fracture [Unknown]
  - Spinal disorder [Unknown]
  - Off label use [Unknown]
  - Bronchitis [Not Recovered/Not Resolved]
  - Foot fracture [Unknown]

NARRATIVE: CASE EVENT DATE: 202101
